FAERS Safety Report 6934126-5 (Version None)
Quarter: 2010Q3

REPORT INFORMATION
  Report Type: 
  Country: None (occurrence: None)
  Receive Date: 20100820
  Receipt Date: 20100813
  Transmission Date: 20110219
  Serious: Yes (Other)
  Sender: FDA-Public Use
  Company Number: US-BAYER-201019166BCC

PATIENT
  Sex: Female

DRUGS (1)
  1. ASPIRIN [Suspect]
     Indication: CARDIAC DISORDER
     Dosage: CONSUMER TOOK ASPIRIN 2 TO 3 TIMES A WEEK FOR 20 TO 25 YEARS.
     Route: 048

REACTIONS (1)
  - GASTRIC ULCER HAEMORRHAGE [None]
